FAERS Safety Report 9191335 (Version 2)
Quarter: 2013Q2

REPORT INFORMATION
  Report Type: Spontaneous
  Country: US (occurrence: US)
  Receive Date: 20130326
  Receipt Date: 20130411
  Transmission Date: 20140414
  Serious: Yes (Other)
  Sender: FDA-Public Use
  Company Number: US-FRI-1000043634

PATIENT
  Age: 44 Year
  Sex: Female
  Weight: 56.8 kg

DRUGS (2)
  1. VIIBRYD [Suspect]
     Indication: GENERALISED ANXIETY DISORDER
     Dosage: 5 MG
     Route: 048
     Dates: start: 20121219, end: 20121219
  2. LORAZEPAM [Concomitant]
     Dosage: 0.5 MG

REACTIONS (2)
  - Hypertensive crisis [Recovered/Resolved]
  - Off label use [Recovered/Resolved]
